FAERS Safety Report 9316328 (Version 1)
Quarter: 2013Q2

REPORT INFORMATION
  Report Type: Spontaneous
  Country: GB (occurrence: None)
  Receive Date: 20130521
  Receipt Date: 20130521
  Transmission Date: 20140414
  Serious: Yes (Other)
  Sender: FDA-Public Use
  Company Number: GER/UKI/13/0029611

PATIENT
  Age: 40 Year
  Sex: Male
  Weight: 69.85 kg

DRUGS (3)
  1. AMLODIPINE (AMLODIPINE) [Suspect]
     Indication: HYPERTENSION
     Route: 048
  2. RAMIPRIL (RAMIPRIL) [Suspect]
     Indication: HYPERTENSION
     Route: 048
  3. MIRTAZAPINE (MIRTAZAPINE) [Concomitant]

REACTIONS (13)
  - Blood pressure decreased [None]
  - Vision blurred [None]
  - Dizziness [None]
  - Glassy eyes [None]
  - Pallor [None]
  - Pupil fixed [None]
  - Tremor [None]
  - Heart rate decreased [None]
  - Disorientation [None]
  - Respiratory rate decreased [None]
  - Loss of consciousness [None]
  - Unresponsive to stimuli [None]
  - Extrasystoles [None]
